FAERS Safety Report 8393257-6 (Version None)
Quarter: 2012Q2

REPORT INFORMATION
  Report Type: 
  Country: None (occurrence: None)
  Receive Date: 20120529
  Receipt Date: 20120518
  Transmission Date: 20120825
  Serious: Yes (Hospitalization)
  Sender: FDA-Public Use
  Company Number: FR-ROCHE-1071833

PATIENT
  Age: 53 Year
  Sex: Male

DRUGS (2)
  1. ALTEPLASE [Suspect]
     Indication: PULMONARY EMBOLISM
  2. EPINEPHRINE [Suspect]
     Indication: VENTRICULAR FIBRILLATION

REACTIONS (3)
  - BONE DISORDER [None]
  - SKIN ULCER [None]
  - IMPLANT SITE NECROSIS [None]
